FAERS Safety Report 10544360 (Version 2)
Quarter: 2014Q4

REPORT INFORMATION
  Report Type: Spontaneous
  Country: US (occurrence: None)
  Receive Date: 20141010
  Receipt Date: 20141205
  Transmission Date: 20150529
  Serious: No
  Sender: FDA-Public Use
  Company Number: 163-POMAL-14073637

PATIENT
  Age: 65 Year
  Sex: Female
  Weight: 54.43 kg

DRUGS (22)
  1. POMALYST [Suspect]
     Active Substance: POMALIDOMIDE
     Indication: PLASMA CELL MYELOMA
     Dosage: 4 MG, 21 IN 21 D, PO
     Route: 048
     Dates: start: 20140529
  2. SYNTHROID [Concomitant]
     Active Substance: LEVOTHYROXINE SODIUM
  3. VALSARTAN/HYDROCHLROTHIAZIDE (CO-DIOVAN) [Concomitant]
  4. MULTIVITAMINS (ERGOCALCIFEROL, ASCORBIC ACID, FOLIC ACID, THIAMINE HYDROCHLORIDE, RETINOL, RIBOFLAVIN, NICOTINAMIDE, PANTHENOL) [Concomitant]
  5. TESSALON (BENZONATATE) [Concomitant]
  6. CLARITIN [Concomitant]
     Active Substance: LORATADINE
  7. NOVOLOG [Concomitant]
     Active Substance: INSULIN ASPART
  8. HUMALOG [Concomitant]
     Active Substance: INSULIN LISPRO
  9. LEVOTHYROXINE SODIUM. [Concomitant]
     Active Substance: LEVOTHYROXINE SODIUM
  10. VITAMIN D (ERGOCALCIFEROL) [Concomitant]
     Active Substance: ERGOCALCIFEROL
  11. CALCIUM CARBONATE. [Concomitant]
     Active Substance: CALCIUM CARBONATE
  12. OFLOXACIN. [Concomitant]
     Active Substance: OFLOXACIN
  13. SYMBICORT (SYMBICORT TURBUHALER ^DRACO^) [Concomitant]
  14. CALCIUM [Concomitant]
     Active Substance: CALCIUM
  15. LISINOPRIL. [Concomitant]
     Active Substance: LISINOPRIL
  16. DEXCOM G4 (DEXTROMETHORPHAN HYDROBROMIDE) [Concomitant]
  17. ASPIRIN (ACETYLSALICYLIC ACID) [Concomitant]
     Active Substance: ASPIRIN
  18. LORATADINE. [Concomitant]
     Active Substance: LORATADINE
  19. MUCINEX (GUAIFENESIN) [Concomitant]
  20. DEXAMETHASONE. [Concomitant]
     Active Substance: DEXAMETHASONE
  21. ZETIA [Concomitant]
     Active Substance: EZETIMIBE
  22. PREDNISONE. [Concomitant]
     Active Substance: PREDNISONE

REACTIONS (5)
  - Nausea [None]
  - Abdominal discomfort [None]
  - Nasal congestion [None]
  - Rhinorrhoea [None]
  - Blood glucose abnormal [None]
